FAERS Safety Report 14371296 (Version 1)
Quarter: 2018Q1

REPORT INFORMATION
  Report Type: Spontaneous
  Country: US (occurrence: US)
  Receive Date: 20180109
  Receipt Date: 20180109
  Transmission Date: 20180509
  Serious: Yes (Other)
  Sender: FDA-Public Use
  Company Number: None

PATIENT
  Age: 61 Year
  Sex: Female

DRUGS (8)
  1. ESCITALOPRAM [Concomitant]
     Active Substance: ESCITALOPRAM OXALATE
  2. LEVOTHYROXIN [Concomitant]
     Active Substance: LEVOTHYROXINE
  3. SIMVASTATIN. [Concomitant]
     Active Substance: SIMVASTATIN
  4. TARCEVA [Suspect]
     Active Substance: ERLOTINIB HYDROCHLORIDE
     Indication: LUNG NEOPLASM MALIGNANT
     Route: 048
     Dates: start: 20160518
  5. RANITIDINE. [Concomitant]
     Active Substance: RANITIDINE
  6. ELIQUIS [Concomitant]
     Active Substance: APIXABAN
  7. CLONAZEPAM. [Concomitant]
     Active Substance: CLONAZEPAM
  8. SYNTHROID [Concomitant]
     Active Substance: LEVOTHYROXINE SODIUM

REACTIONS (2)
  - Lung neoplasm malignant [None]
  - Malignant neoplasm progression [None]
